FAERS Safety Report 9356724 (Version 3)
Quarter: 2013Q3

REPORT INFORMATION
  Report Type: Spontaneous
  Country: BR (occurrence: BR)
  Receive Date: 20130619
  Receipt Date: 20130722
  Transmission Date: 20140515
  Serious: Yes (Hospitalization, Other)
  Sender: FDA-Public Use
  Company Number: PHHY2013BR061979

PATIENT
  Age: 61 Year
  Sex: Female
  Weight: 70 kg

DRUGS (10)
  1. APRESOLIN [Suspect]
     Indication: HYPERTENSION
     Dosage: 2 DF (50 MG) DAILY
     Route: 048
     Dates: end: 201305
  2. DIOVAN [Suspect]
     Dosage: 1 DF (320 MG) Q12H
     Route: 048
  3. GLIFAGE [Concomitant]
     Indication: DIABETES MELLITUS
     Dosage: 1 DF (500 MG), DAILY
     Route: 048
  4. RIVOTRIL [Concomitant]
     Indication: SLEEP DISORDER
     Dosage: 1 DF, (2 MG) DAILY
     Route: 048
  5. OMEPRAZOLE [Concomitant]
     Indication: ABDOMINAL DISCOMFORT
     Dosage: 2 DF, (200 MG) DAILY
     Route: 048
  6. ATENSINA [Concomitant]
     Indication: HYPERTENSION
     Dosage: 2 DF, (0,2 MG) DAILY
     Route: 048
  7. ATENSINA [Concomitant]
     Dosage: 1 DF, (150 MG) PER DAY
     Route: 048
     Dates: start: 201305
  8. AMLODIPINE [Concomitant]
     Indication: HYPERTENSION
     Dosage: 1 DF, (10 MG) PER DAY
     Route: 048
     Dates: start: 201205
  9. PRESSAT [Concomitant]
     Indication: HYPERTENSION
     Dosage: 1 DF, (10 MG) PER DAY IN THE MORNING
     Route: 048
     Dates: start: 201205
  10. NATRILIX [Concomitant]
     Indication: HYPERTENSION
     Dosage: 1 DF, (1,5 MG) PER DAY
     Route: 048
     Dates: start: 201305

REACTIONS (2)
  - Cardiac murmur [Not Recovered/Not Resolved]
  - Blood pressure increased [Recovered/Resolved]
